FAERS Safety Report 12190819 (Version 1)
Quarter: 2016Q1

REPORT INFORMATION
  Report Type: Spontaneous
  Country: US (occurrence: None)
  Receive Date: 20160317
  Receipt Date: 20160317
  Transmission Date: 20160526
  Serious: Yes (Other)
  Sender: FDA-Public Use
  Company Number: None

PATIENT
  Age: 10 Year
  Sex: Female
  Weight: 45.36 kg

DRUGS (2)
  1. FLINTSTONE VITAMINS [Concomitant]
  2. PREDNISONE 20MG TABLET CVS [Suspect]
     Active Substance: PREDNISONE
     Indication: RASH
     Dosage: 20MG TABLET 1 TABLET BY MOUTH TWICE A DAY X 5 DAYS ORAL-BY MOUTH
     Route: 048
     Dates: start: 20151005

REACTIONS (4)
  - Reaction to preservatives [None]
  - Rash [None]
  - Vomiting [None]
  - Erythema [None]

NARRATIVE: CASE EVENT DATE: 20151005
